FAERS Safety Report 15183691 (Version 2)
Quarter: 2018Q3

REPORT INFORMATION
  Report Type: Report from Study
  Country: US (occurrence: US)
  Receive Date: 20180723
  Receipt Date: 20180808
  Transmission Date: 20181010
  Serious: Yes (Other)
  Sender: FDA-Public Use
  Company Number: US-ACTELION-A-US2018-173547

PATIENT
  Age: 64 Year
  Sex: Male
  Weight: 117.91 kg

DRUGS (4)
  1. VELETRI [Suspect]
     Active Substance: EPOPROSTENOL
     Indication: PULMONARY ARTERIAL HYPERTENSION
     Dosage: 7 NG/KG, PER MIN
     Route: 042
  2. VELETRI [Suspect]
     Active Substance: EPOPROSTENOL
     Dosage: 8 NG/KG, PER MIN
     Route: 042
  3. ADCIRCA [Suspect]
     Active Substance: TADALAFIL
     Indication: PRODUCT USED FOR UNKNOWN INDICATION
     Dosage: 10 MG, QD
     Route: 065
  4. ELIQUIS [Concomitant]
     Active Substance: APIXABAN

REACTIONS (11)
  - Dehydration [Unknown]
  - Arthralgia [Unknown]
  - Decreased appetite [Unknown]
  - Pain [Unknown]
  - Headache [Unknown]
  - Condition aggravated [Unknown]
  - Weight decreased [Unknown]
  - Fluid retention [Unknown]
  - Pain in jaw [Unknown]
  - Diarrhoea [Unknown]
  - Hypotension [Unknown]
